FAERS Safety Report 8129476 (Version 2)
Quarter: 2014Q1

REPORT INFORMATION
  Report Type: Spontaneous
  Country: US (occurrence: US)
  Receive Date: 20110909
  Receipt Date: 20140103
  Transmission Date: 20141002
  Serious: Yes (Other)
  Sender: FDA-Public Use
  Company Number: US-BAYER-2011-080828

PATIENT
  Age: 30 Year
  Sex: Female

DRUGS (1)
  1. MIRENA [Suspect]
     Indication: CONTRACEPTION
     Dosage: 20 MCG/24HR, CONT
     Route: 015
     Dates: start: 201003

REACTIONS (9)
  - Genital haemorrhage [None]
  - Abdominal pain lower [None]
  - Abdominal pain [Not Recovered/Not Resolved]
  - Human papilloma virus test positive [None]
  - Bacterial infection [None]
  - Cervical dysplasia [None]
  - Amenorrhoea [Not Recovered/Not Resolved]
  - Vaginal haemorrhage [Not Recovered/Not Resolved]
  - Genital discharge [Not Recovered/Not Resolved]
